FAERS Safety Report 13059140 (Version 1)
Quarter: 2016Q4

REPORT INFORMATION
  Report Type: Spontaneous
  Country: US (occurrence: US)
  Receive Date: 20161223
  Receipt Date: 20161223
  Transmission Date: 20170207
  Serious: No
  Sender: FDA-Public Use
  Company Number: US-BAUSCH-BL-2016-016332

PATIENT
  Age: 68 Year
  Sex: Female
  Weight: 74.91 kg

DRUGS (3)
  1. XENAZINE [Suspect]
     Active Substance: TETRABENAZINE
     Route: 048
     Dates: start: 201501
  2. XENAZINE [Suspect]
     Active Substance: TETRABENAZINE
     Indication: HUNTINGTON^S DISEASE
     Route: 048
     Dates: start: 2013
  3. XENAZINE [Suspect]
     Active Substance: TETRABENAZINE
     Dosage: AS NEEDED
     Route: 048
     Dates: start: 201408, end: 201501

REACTIONS (2)
  - Depression [Unknown]
  - Treatment noncompliance [Unknown]

NARRATIVE: CASE EVENT DATE: 20140730
